FAERS Safety Report 16437342 (Version 3)
Quarter: 2020Q3

REPORT INFORMATION
  Report Type: Spontaneous
  Country: AR (occurrence: AR)
  Receive Date: 20190615
  Receipt Date: 20200711
  Transmission Date: 20201102
  Serious: Yes (Death, Other)
  Sender: FDA-Public Use
  Company Number: AR-UNITED THERAPEUTICS-UNT-2019-010345

PATIENT

DRUGS (3)
  1. NITRIC OXIDE. [Concomitant]
     Active Substance: NITRIC OXIDE
     Indication: PRODUCT USED FOR UNKNOWN INDICATION
     Dosage: 20 PPM
  2. MILRINONE [Concomitant]
     Active Substance: MILRINONE
     Indication: PRODUCT USED FOR UNKNOWN INDICATION
     Dosage: 0.5 GM/KG/MIN
     Route: 065
  3. REMODULIN [Suspect]
     Active Substance: TREPROSTINIL
     Indication: NEWBORN PERSISTENT PULMONARY HYPERTENSION
     Dosage: 0.006 ?G/KG, CONTINUING
     Route: 041

REACTIONS (5)
  - Pulmonary hypertension [Fatal]
  - Hypoxia [Fatal]
  - Haemodynamic test abnormal [Fatal]
  - Drug ineffective [Unknown]
  - Drug titration error [Unknown]
